FAERS Safety Report 9924026 (Version 2)
Quarter: 2014Q2

REPORT INFORMATION
  Report Type: Spontaneous
  Country: GB (occurrence: GB)
  Receive Date: 20140225
  Receipt Date: 20140414
  Transmission Date: 20141212
  Serious: Yes (Other)
  Sender: FDA-Public Use
  Company Number: GB-MYLANLABS-2014S1003165

PATIENT
  Age: 51 Year
  Sex: Female
  Weight: 70 kg

DRUGS (5)
  1. LETROZOLE [Suspect]
     Indication: BREAST CANCER METASTATIC
     Route: 048
     Dates: start: 20140101, end: 20140114
  2. BENDROFLUMETHIAZIDE [Concomitant]
  3. LOSARTAN [Concomitant]
  4. OMEPRAZOLE MAGNESIUM [Concomitant]
  5. PAROXETINE [Concomitant]

REACTIONS (3)
  - Visual impairment [Recovering/Resolving]
  - Diplopia [Recovering/Resolving]
  - Eye movement disorder [Recovering/Resolving]
